FAERS Safety Report 7558853-4 (Version None)
Quarter: 2011Q2

REPORT INFORMATION
  Report Type: 
  Country: None (occurrence: None)
  Receive Date: 20110613
  Receipt Date: 20110531
  Transmission Date: 20111010
  Serious: Yes (Death, Hospitalization)
  Sender: FDA-Public Use
  Company Number: MPS1-1000521

PATIENT
  Age: 8 Month
  Sex: Male
  Weight: 7 kg

DRUGS (4)
  1. VENOLINE (SALBUTAMOL) [Concomitant]
  2. ALDURAZYME [Suspect]
     Indication: MUCOPOLYSACCHARIDOSIS
     Dosage: 100 U/KG, QW, INTRAVENOUS
     Route: 042
     Dates: start: 20110403, end: 20110524
  3. NEXIUM [Concomitant]
  4. GAVISCON (SODIUM BICARBONATE) [Concomitant]

REACTIONS (8)
  - INTERSTITIAL LUNG DISEASE [None]
  - VENTRICULAR FIBRILLATION [None]
  - PALLOR [None]
  - VOMITING [None]
  - HYPOTENSION [None]
  - CARDIOMEGALY [None]
  - LEFT VENTRICULAR DYSFUNCTION [None]
  - BRADYCARDIA [None]
